FAERS Safety Report 6641450-2 (Version None)
Quarter: 2010Q1

REPORT INFORMATION
  Report Type: 
  Country: None (occurrence: None)
  Receive Date: 20100317
  Receipt Date: 20100317
  Transmission Date: 20100710
  Serious: Yes (Hospitalization)
  Sender: FDA-Public Use
  Company Number: None

PATIENT
  Age: 82 Year
  Sex: Male

DRUGS (1)
  1. TRIFLUOPERAZINE HCL [Suspect]
     Indication: PARANOIA
     Dosage: 1 MG BID PO
     Route: 048
     Dates: start: 20091029, end: 20091222

REACTIONS (1)
  - PARKINSONISM [None]
